FAERS Safety Report 9029456 (Version 4)
Quarter: 2013Q2

REPORT INFORMATION
  Report Type: Spontaneous
  Country: US (occurrence: US)
  Receive Date: 20130125
  Receipt Date: 20130529
  Transmission Date: 20140414
  Serious: No
  Sender: FDA-Public Use
  Company Number: US-PFIZER INC-2013028612

PATIENT
  Age: 68 Year
  Sex: Female
  Weight: 67.6 kg

DRUGS (15)
  1. PROTONIX [Suspect]
     Indication: GASTROOESOPHAGEAL REFLUX DISEASE
     Dosage: 40 MG, 1X/DAY
     Route: 048
  2. PROTONIX [Suspect]
     Dosage: 40 MG, 2X/DAY
     Route: 048
  3. ENABLEX [Concomitant]
     Dosage: UNK
  4. DETROL LA [Concomitant]
     Dosage: UNK
  5. VENTOLIN [Concomitant]
     Dosage: UNK
  6. LYRICA [Concomitant]
     Dosage: UNK
  7. IRON [Concomitant]
     Dosage: 1 DF, 1X/DAY
  8. ORENCIA [Concomitant]
     Dosage: UNK
  9. METHOTREXATE [Concomitant]
     Dosage: 1 DF, WEEKLY
  10. FOLIC ACID [Concomitant]
     Dosage: UNK
  11. CYMBALTA [Concomitant]
     Dosage: UNK
  12. ACYCLOVIR [Concomitant]
     Dosage: UNK
  13. EXCEDRIN [Concomitant]
     Indication: HEADACHE
     Dosage: UNK, AS NEEDED
  14. CALCIUM [Concomitant]
     Dosage: 600 MG, 2X/DAY
  15. MULTIVITAMINS [Concomitant]
     Dosage: 1 DF, 1X/DAY

REACTIONS (2)
  - Drug ineffective [Unknown]
  - Abdominal pain upper [Unknown]
